FAERS Safety Report 5553651-5 (Version None)
Quarter: 2007Q4

REPORT INFORMATION
  Report Type: 
  Country: None (occurrence: None)
  Receive Date: 20071213
  Receipt Date: 20071128
  Transmission Date: 20080405
  Serious: Yes (Other)
  Sender: FDA-Public Use
  Company Number: PHEH2007US15577

PATIENT
  Age: 64 Year
  Sex: Male

DRUGS (1)
  1. METOPROLOL [Suspect]
     Indication: CHEST PAIN
     Dosage: 5MG/5ML
     Dates: start: 20071002, end: 20071002

REACTIONS (6)
  - BLOOD PRESSURE INCREASED [None]
  - EYE DISORDER [None]
  - HYPERHIDROSIS [None]
  - PAIN IN EXTREMITY [None]
  - PARAESTHESIA [None]
  - WEIGHT INCREASED [None]
